FAERS Safety Report 17423878 (Version 1)
Quarter: 2020Q1

REPORT INFORMATION
  Report Type: Spontaneous
  Country: DK (occurrence: DK)
  Receive Date: 20200217
  Receipt Date: 20200217
  Transmission Date: 20200409
  Serious: Yes (Hospitalization)
  Sender: FDA-Public Use
  Company Number: DK-TEVA-2020-DK-1185805

PATIENT
  Age: 78 Year
  Sex: Female

DRUGS (6)
  1. NICORETTE INVISI [Concomitant]
     Active Substance: NICOTINE
     Indication: SMOKING CESSATION THERAPY
     Dosage: STRENGTH: 15 MG/16 HOURS
     Route: 062
     Dates: start: 20200114
  2. BISACODYL. [Concomitant]
     Active Substance: BISACODYL
     Indication: CONSTIPATION
     Dosage: STRENGTH: 5 MG (10MG)
     Route: 048
     Dates: start: 20200114
  3. OXYCODONE [Concomitant]
     Active Substance: OXYCODONE
     Indication: PAIN
     Dosage: STRENGTH: 5 MG AND 10 MG, DOSE: 10 MG MORNING AND EVENING + 5 MG PN, MAX. 6 X DAILY.
     Route: 048
     Dates: start: 20200114
  4. PARACETAMOL [Concomitant]
     Active Substance: ACETAMINOPHEN
     Indication: PAIN
     Dosage: STRENGTH: 500 MG (4000MG)
     Route: 048
     Dates: start: 20200114
  5. TRANEXAMIC ACID. [Concomitant]
     Active Substance: TRANEXAMIC ACID
     Indication: PRODUCT USED FOR UNKNOWN INDICATION
     Dosage: DOSE UNKNOWN. STRENGTH: UNKNOWN.
  6. IBUPROFEN ^TEVA^ [Suspect]
     Active Substance: IBUPROFEN
     Indication: PAIN
     Dosage: STRENGTH: 400 MG (1600MG)
     Route: 048
     Dates: start: 20200114, end: 20200123

REACTIONS (5)
  - Gastrointestinal haemorrhage [Recovered/Resolved]
  - Malaise [Unknown]
  - Haemoglobin decreased [Recovered/Resolved]
  - Syncope [Recovered/Resolved]
  - Gastric disorder [Unknown]

NARRATIVE: CASE EVENT DATE: 202001
